FAERS Safety Report 17697633 (Version 1)
Quarter: 2020Q2

REPORT INFORMATION
  Report Type: Other
  Country: JP (occurrence: JP)
  Receive Date: 20200423
  Receipt Date: 20200423
  Transmission Date: 20200714
  Serious: Yes (Hospitalization, Other)
  Sender: FDA-Public Use
  Company Number: JP-APTAPHARMA INC.-2083069

PATIENT
  Age: 43 Year
  Sex: Female

DRUGS (5)
  1. LAMOTRIGINE. [Suspect]
     Active Substance: LAMOTRIGINE
     Route: 065
  2. CAFFEINE. [Suspect]
     Active Substance: CAFFEINE
     Route: 065
  3. AMITRIPTYLINE [Suspect]
     Active Substance: AMITRIPTYLINE
     Route: 065
  4. IBUPROFEN ORAL [Suspect]
     Active Substance: IBUPROFEN
     Indication: SUICIDE ATTEMPT
     Route: 065
  5. RISPERIDONE. [Suspect]
     Active Substance: RISPERIDONE
     Route: 065

REACTIONS (15)
  - Intentional product misuse [Unknown]
  - Tremor [Unknown]
  - Metabolic acidosis [Unknown]
  - Hyperlactacidaemia [Unknown]
  - Torsade de pointes [Unknown]
  - Atrial fibrillation [Unknown]
  - Toxicity to various agents [Unknown]
  - Shock [Unknown]
  - Hypokalaemia [Unknown]
  - Loss of consciousness [Unknown]
  - Mental status changes [Unknown]
  - Hyperhidrosis [Unknown]
  - Cardiac arrest [Unknown]
  - Ventricular fibrillation [Unknown]
  - Tachycardia [Unknown]
